FAERS Safety Report 9403746 (Version 1)
Quarter: 2013Q3

REPORT INFORMATION
  Report Type: Spontaneous
  Country: US (occurrence: None)
  Receive Date: 20130715
  Receipt Date: 20130715
  Transmission Date: 20140515
  Serious: Yes (Hospitalization)
  Sender: FDA-Public Use
  Company Number: None

PATIENT
  Age: 68 Year
  Sex: Male
  Weight: 76.4 kg

DRUGS (3)
  1. WARFARIN [Suspect]
     Indication: PULMONARY EMBOLISM
     Dates: start: 20111222, end: 20130616
  2. WARFARIN [Suspect]
     Indication: DEEP VEIN THROMBOSIS
     Dates: start: 20111222, end: 20130616
  3. ASPIRIN [Suspect]
     Indication: CARDIOVASCULAR EVENT PROPHYLAXIS
     Route: 048
     Dates: start: 20121226, end: 20130705

REACTIONS (1)
  - Gastric haemorrhage [None]
